FAERS Safety Report 8070887-2 (Version None)
Quarter: 2012Q1

REPORT INFORMATION
  Report Type: 
  Country: None (occurrence: None)
  Receive Date: 20120125
  Receipt Date: 20120120
  Transmission Date: 20120608
  Serious: Yes (Hospitalization, Other)
  Sender: FDA-Public Use
  Company Number: US-PFIZER INC-2012017290

PATIENT
  Sex: Female
  Weight: 56.689 kg

DRUGS (4)
  1. TAPAZOLE [Interacting]
     Indication: HYPERTHYROIDISM
     Dosage: UNK
     Dates: start: 20111001, end: 20111228
  2. CORDARONE [Interacting]
     Indication: TACHYCARDIA
     Dosage: UNK
     Dates: start: 20080101, end: 20111228
  3. LISINOPRIL [Concomitant]
     Indication: PROPHYLAXIS
     Dosage: UNK
  4. LIPITOR [Suspect]
     Indication: PROPHYLAXIS
     Dosage: 40 MG, 1X/DAY
     Route: 048
     Dates: start: 20060101, end: 20111228

REACTIONS (6)
  - NERVOUS SYSTEM DISORDER [None]
  - HYPERTHYROIDISM [None]
  - LIVER DISORDER [None]
  - HEPATIC ENZYME INCREASED [None]
  - DRUG INTERACTION [None]
  - JAUNDICE [None]
